FAERS Safety Report 6767457-2 (Version None)
Quarter: 2010Q2

REPORT INFORMATION
  Report Type: 
  Country: None (occurrence: None)
  Receive Date: 20100610
  Receipt Date: 20100526
  Transmission Date: 20101027
  Serious: Yes (Other)
  Sender: FDA-Public Use
  Company Number: AUR-APL-2010-01493

PATIENT
  Age: 63 Year
  Sex: Male
  Weight: 53.06 kg

DRUGS (7)
  1. MIRTAZAPINE [Suspect]
     Indication: ANXIETY
     Dosage: 40MG, DAILY, ORAL; 4 YEARS AGO
     Route: 048
  2. MIRTAZAPINE [Suspect]
     Indication: CONVULSION
     Dosage: 40MG, DAILY, ORAL; 4 YEARS AGO
     Route: 048
  3. MIRTAZAPINE [Suspect]
     Indication: DEPRESSION
     Dosage: 40MG, DAILY, ORAL; 4 YEARS AGO
     Route: 048
  4. GEODON [Suspect]
     Indication: AGITATION
     Dosage: 20MG, DAILY, ORAL;  3 YEARS AGO
     Route: 048
  5. GEODON [Suspect]
     Indication: CONFUSIONAL STATE
     Dosage: 20MG, DAILY, ORAL;  3 YEARS AGO
     Route: 048
  6. DIGOXIN [Concomitant]
  7. TYLENOL [Concomitant]

REACTIONS (2)
  - DYSPHAGIA [None]
  - WITHDRAWAL SYNDROME [None]
